FAERS Safety Report 10256681 (Version 5)
Quarter: 2014Q3

REPORT INFORMATION
  Report Type: Spontaneous
  Country: US (occurrence: US)
  Receive Date: 20140624
  Receipt Date: 20140808
  Transmission Date: 20150326
  Serious: Yes (Hospitalization, Other)
  Sender: FDA-Public Use
  Company Number: US-GILEAD-2014-0106600

PATIENT
  Age: 66 Year
  Sex: Female

DRUGS (1)
  1. LETAIRIS [Suspect]
     Active Substance: AMBRISENTAN
     Indication: PULMONARY ARTERIAL HYPERTENSION
     Dosage: 5 MG, QD
     Route: 065
     Dates: start: 20110531

REACTIONS (10)
  - Cardiac failure congestive [Unknown]
  - Fluid retention [Recovering/Resolving]
  - Oedema [Unknown]
  - Swelling [Recovering/Resolving]
  - Anaemia [Recovering/Resolving]
  - Pulmonary arterial hypertension [Unknown]
  - Liver disorder [Unknown]
  - Scleroderma [Unknown]
  - Dyspnoea [Unknown]
  - Diabetes mellitus [Unknown]
